FAERS Safety Report 12951085 (Version 1)
Quarter: 2016Q4

REPORT INFORMATION
  Report Type: Spontaneous
  Country: US (occurrence: US)
  Receive Date: 20161117
  Receipt Date: 20161117
  Transmission Date: 20170207
  Serious: Yes (Other)
  Sender: FDA-Public Use
  Company Number: US-NOVOPROD-481109

PATIENT
  Age: 56 Year
  Sex: Male
  Weight: 106.58 kg

DRUGS (2)
  1. NOVOLOG [Suspect]
     Active Substance: INSULIN ASPART
     Indication: TYPE 2 DIABETES MELLITUS
     Dosage: 7 UNITS THREE TIMES DAILY WITH MEALS
     Route: 058
     Dates: start: 20160211
  2. LEVEMIR [Concomitant]
     Active Substance: INSULIN DETEMIR
     Indication: TYPE 2 DIABETES MELLITUS
     Dosage: 20 UNITS DAILY
     Route: 058
     Dates: start: 20160211

REACTIONS (4)
  - Device malfunction [Recovering/Resolving]
  - Blood glucose increased [Recovering/Resolving]
  - Blood pressure decreased [Recovering/Resolving]
  - Incorrect dosage administered [Recovering/Resolving]

NARRATIVE: CASE EVENT DATE: 20160215
